FAERS Safety Report 8576681 (Version 2)
Quarter: 2014Q1

REPORT INFORMATION
  Report Type: Spontaneous
  Country: US (occurrence: None)
  Receive Date: 20120323
  Receipt Date: 20130305
  Transmission Date: 20141002
  Serious: Yes (Other)
  Sender: FDA-Public Use
  Company Number: 163-21880-11113020

PATIENT
  Age: 77 Year
  Sex: Female
  Weight: 57.61 kg

DRUGS (8)
  1. REVLIMID [Suspect]
     Indication: PLASMA CELL MYELOMA
     Dosage: 10 MG, 1 IN 1 D, PO
     Route: 048
     Dates: start: 201104
  2. OMPRAZOLE [Concomitant]
  3. BENTYL [Concomitant]
  4. SYNTHROID [Concomitant]
  5. LORATADINE [Concomitant]
  6. SERTRALINE HYDROCHLORIDE [Concomitant]
  7. PREDNISONE [Concomitant]
  8. ZETIA (EZETIMIBE) [Concomitant]

REACTIONS (2)
  - Treatment failure [None]
  - Dyspnoea [None]
